FAERS Safety Report 22215163 (Version 1)
Quarter: 2023Q2

REPORT INFORMATION
  Report Type: Spontaneous
  Country: US (occurrence: US)
  Receive Date: 20230415
  Receipt Date: 20230415
  Transmission Date: 20230721
  Serious: No
  Sender: FDA-Public Use
  Company Number: US-JNJFOC-20191209512

PATIENT
  Age: 93 Year
  Sex: Male
  Weight: 69.008 kg

DRUGS (1)
  1. IMODIUM MULTI-SYMPTOM RELIEF [Suspect]
     Active Substance: DIMETHICONE\LOPERAMIDE HYDROCHLORIDE
     Indication: Diarrhoea
     Dosage: 2 CAPLETS EVERY NINE HOURS 2 CAPLETS EVERY NINE HOURS
     Route: 065
     Dates: start: 20191201, end: 20191204

REACTIONS (4)
  - Constipation [Unknown]
  - Flatulence [Unknown]
  - Incorrect dose administered [Unknown]
  - Off label use [Unknown]

NARRATIVE: CASE EVENT DATE: 20191201
